FAERS Safety Report 5782616-3 (Version None)
Quarter: 2008Q2

REPORT INFORMATION
  Report Type: 
  Country: None (occurrence: None)
  Receive Date: 20080624
  Receipt Date: 20080613
  Transmission Date: 20081010
  Serious: Yes (Disabling, Other)
  Sender: FDA-Public Use
  Company Number: DE-ABBOTT-08P-062-0457725-00

PATIENT
  Sex: Female

DRUGS (1)
  1. ENANTONE MONATSDEPOT [Suspect]
     Indication: PRECOCIOUS PUBERTY
     Route: 058
     Dates: start: 20070814, end: 20080331

REACTIONS (1)
  - INJECTION SITE ABSCESS [None]
